FAERS Safety Report 16053656 (Version 1)
Quarter: 2019Q1

REPORT INFORMATION
  Report Type: Spontaneous
  Country: FR (occurrence: FR)
  Receive Date: 20190308
  Receipt Date: 20190308
  Transmission Date: 20190418
  Serious: Yes (Other)
  Sender: FDA-Public Use
  Company Number: FR-MYLANLABS-2019M1021487

PATIENT
  Age: 71 Year
  Sex: Female
  Weight: 86 kg

DRUGS (2)
  1. EXEMESTANE MYLAN 25 MG, COMPRIM? PELLICUL? [Suspect]
     Active Substance: EXEMESTANE
     Indication: BREAST CANCER
     Dosage: 25 MILLIGRAM (G?N?RIQUES EXEMESTANE MYLAN ET SANDOZ EN ALTERNANCE)
     Route: 048
     Dates: start: 201610, end: 201804
  2. EXEMESTANE SANDOZ [Suspect]
     Active Substance: EXEMESTANE
     Indication: BREAST CANCER
     Dosage: 25 MILLIGRAM, QD (G?N?RIQUES EXEMESTANE SANDOZ ET MYLAN EN ALTERNANCE)
     Route: 048
     Dates: start: 201610, end: 201804

REACTIONS (1)
  - Tumour marker increased [Recovered/Resolved]

NARRATIVE: CASE EVENT DATE: 201710
